FAERS Safety Report 21926706 (Version 1)
Quarter: 2023Q1

REPORT INFORMATION
  Report Type: Spontaneous
  Country: GB (occurrence: GB)
  Receive Date: 20230130
  Receipt Date: 20230130
  Transmission Date: 20230417
  Serious: Yes (Other)
  Sender: FDA-Public Use
  Company Number: GB-MHRA-MED-202301191027577730-MPLYT

PATIENT
  Age: 43 Year
  Sex: Female

DRUGS (1)
  1. ESCITALOPRAM [Suspect]
     Active Substance: ESCITALOPRAM OXALATE
     Indication: Anxiety
     Dosage: 10 MILLIGRAM DAILY; 10 MG ONCE A DAY AT MID DAY;
     Route: 065
     Dates: start: 20230104

REACTIONS (1)
  - Eyelid myoclonus [Recovering/Resolving]

NARRATIVE: CASE EVENT DATE: 20230105
